FAERS Safety Report 22604938 (Version 1)
Quarter: 2023Q2

REPORT INFORMATION
  Report Type: Spontaneous
  Country: US (occurrence: None)
  Receive Date: 20230614
  Receipt Date: 20230614
  Transmission Date: 20230721
  Serious: Yes (Hospitalization, Disabling)
  Sender: FDA-Public Use
  Company Number: None

PATIENT
  Age: 40 Year
  Sex: Male
  Weight: 83.25 kg

DRUGS (2)
  1. CIPROFLOXACIN [Suspect]
     Active Substance: CIPROFLOXACIN
     Indication: Urinary tract infection
  2. CIPROFLOXACIN [Suspect]
     Active Substance: CIPROFLOXACIN
     Indication: Kidney infection

REACTIONS (11)
  - Impaired work ability [None]
  - Gait disturbance [None]
  - Pain [None]
  - Asthenia [None]
  - Dizziness [None]
  - Insomnia [None]
  - Abdominal pain [None]
  - Middle insomnia [None]
  - Tendon pain [None]
  - Tendon pain [None]
  - Dysstasia [None]

NARRATIVE: CASE EVENT DATE: 20221212
